FAERS Safety Report 9794679 (Version 1)
Quarter: 2014Q1

REPORT INFORMATION
  Report Type: Spontaneous
  Country: IT (occurrence: IT)
  Receive Date: 20140102
  Receipt Date: 20140102
  Transmission Date: 20141002
  Serious: Yes (Other)
  Sender: FDA-Public Use
  Company Number: IT-WATSON-2013-24319

PATIENT
  Age: 62 Year
  Sex: Female

DRUGS (3)
  1. SIMVASTATIN (UNKNOWN) [Suspect]
     Indication: HYPERCHOLESTEROLAEMIA
     Dosage: 20 MG, DAILY
     Route: 048
     Dates: start: 20130928, end: 20131006
  2. PLAUNAZIDE [Concomitant]
     Indication: HYPERTENSION
     Dosage: 32.5 MG, UNK
     Route: 065
  3. BISOPROLOL HEMIFUMARATE [Concomitant]
     Indication: HYPERTENSION
     Dosage: 1.25 MG, UNK
     Route: 065

REACTIONS (2)
  - Rhabdomyolysis [Unknown]
  - Presyncope [Unknown]
